FAERS Safety Report 26089138 (Version 1)
Quarter: 2025Q4

REPORT INFORMATION
  Report Type: Spontaneous
  Country: EU (occurrence: EU)
  Receive Date: 20251125
  Receipt Date: 20251125
  Transmission Date: 20260118
  Serious: Yes (Other)
  Sender: PFIZER
  Company Number: EU-PFIZER INC-PV202500136060

PATIENT
  Age: 25 Year
  Sex: Male

DRUGS (1)
  1. CIBINQO [Suspect]
     Active Substance: ABROCITINIB
     Indication: Eczema
     Dosage: 200 MG
     Dates: start: 2023

REACTIONS (3)
  - Eczema herpeticum [Unknown]
  - Herpes zoster [Unknown]
  - Therapeutic product effect decreased [Unknown]
